FAERS Safety Report 16802865 (Version 2)
Quarter: 2019Q3

REPORT INFORMATION
  Report Type: Spontaneous
  Country: CA (occurrence: CA)
  Receive Date: 20190913
  Receipt Date: 20190913
  Transmission Date: 20191005
  Serious: Yes (Death, Other)
  Sender: FDA-Public Use
  Company Number: PHHY2019CA212305

PATIENT
  Age: 84 Year
  Sex: Female

DRUGS (3)
  1. CODEINE PHOSPHATE [Suspect]
     Active Substance: CODEINE PHOSPHATE
     Indication: PRODUCT USED FOR UNKNOWN INDICATION
     Route: 065
  2. SANDOSTATIN [Suspect]
     Active Substance: OCTREOTIDE ACETATE
     Indication: NEUROENDOCRINE TUMOUR
     Dosage: 100 MG, TOTAL
     Route: 058
  3. LASIX [Concomitant]
     Active Substance: FUROSEMIDE
     Indication: PRODUCT USED FOR UNKNOWN INDICATION
     Dosage: 3 DF, QW

REACTIONS (16)
  - Heart rate decreased [Unknown]
  - Influenza [Unknown]
  - Asthenia [Unknown]
  - Blood pressure systolic increased [Unknown]
  - Feeling cold [Unknown]
  - Wrist fracture [Unknown]
  - Death [Fatal]
  - Blood albumin increased [Unknown]
  - Cough [Unknown]
  - Oedema [Unknown]
  - Musculoskeletal stiffness [Unknown]
  - Viral infection [Unknown]
  - Malaise [Unknown]
  - Body temperature decreased [Unknown]
  - Blood pressure increased [Unknown]
  - Renal failure [Unknown]
